FAERS Safety Report 24767379 (Version 2)
Quarter: 2025Q2

REPORT INFORMATION
  Report Type: Report from Study
  Country: US (occurrence: US)
  Receive Date: 20241223
  Receipt Date: 20250424
  Transmission Date: 20250716
  Serious: Yes (Other)
  Sender: TAKEDA
  Company Number: US-TAKEDA-2021TUS048241

PATIENT
  Sex: Female
  Weight: 104 kg

DRUGS (24)
  1. VELAGLUCERASE ALFA [Suspect]
     Active Substance: VELAGLUCERASE ALFA
     Indication: Gaucher^s disease
     Dosage: 4800 INTERNATIONAL UNIT, Q2WEEKS
     Dates: start: 20140904
  2. VELAGLUCERASE ALFA [Suspect]
     Active Substance: VELAGLUCERASE ALFA
     Dosage: 4800 INTERNATIONAL UNIT, Q2WEEKS
  3. EPINEPHRINE [Concomitant]
     Active Substance: EPINEPHRINE
  4. SODIUM CHLORIDE [Concomitant]
     Active Substance: SODIUM CHLORIDE
  5. NUCYNTA [Concomitant]
     Active Substance: TAPENTADOL HYDROCHLORIDE
  6. TRAZODONE HCL [Concomitant]
     Active Substance: TRAZODONE HYDROCHLORIDE
  7. STERILE WATER [Concomitant]
     Active Substance: WATER
  8. SODIUM CHLORIDE [Concomitant]
     Active Substance: SODIUM CHLORIDE
  9. ATOMOXETINE HYDROCHLORIDE [Concomitant]
     Active Substance: ATOMOXETINE HYDROCHLORIDE
  10. BELBUCA [Concomitant]
     Active Substance: BUPRENORPHINE HYDROCHLORIDE
  11. PROPRANOLOL HYDROCHLORIDE [Concomitant]
     Active Substance: PROPRANOLOL HYDROCHLORIDE
     Indication: Product used for unknown indication
  12. MELATONIN [Concomitant]
     Active Substance: MELATONIN
  13. NORTRIPTYLINE HYDROCHLORIDE [Concomitant]
     Active Substance: NORTRIPTYLINE HYDROCHLORIDE
  14. NORTRIPTYLINE [Concomitant]
     Active Substance: NORTRIPTYLINE
  15. WELLBUTRIN XL [Concomitant]
     Active Substance: BUPROPION HYDROCHLORIDE
  16. BELSOMRA [Concomitant]
     Active Substance: SUVOREXANT
  17. STRATTERA [Concomitant]
     Active Substance: ATOMOXETINE HYDROCHLORIDE
  18. FAMOTIDINE [Concomitant]
     Active Substance: FAMOTIDINE
  19. ALLEGRA ALLERGY [Concomitant]
     Active Substance: FEXOFENADINE HYDROCHLORIDE
  20. CHONDROITIN SULFATE (BOVINE)\GLUCOSAMINE HYDROCHLORIDE [Concomitant]
     Active Substance: CHONDROITIN SULFATE (BOVINE)\GLUCOSAMINE HYDROCHLORIDE
  21. DRONABINOL [Concomitant]
     Active Substance: DRONABINOL
  22. VITAMIN D3 [Concomitant]
     Active Substance: CHOLECALCIFEROL
  23. LEVOTHYROXINE SODIUM [Concomitant]
     Active Substance: LEVOTHYROXINE SODIUM
  24. Estroven complete multi symptom menopause relief [Concomitant]

REACTIONS (10)
  - Hypothyroidism [Unknown]
  - Multiple allergies [Unknown]
  - Sinusitis [Unknown]
  - Skin infection [Unknown]
  - Eye inflammation [Unknown]
  - Oropharyngeal pain [Unknown]
  - Seasonal allergy [Unknown]
  - Inappropriate schedule of product administration [Unknown]
  - Hypersensitivity [Unknown]
  - Product dose omission issue [Unknown]
